FAERS Safety Report 9021930 (Version 3)
Quarter: 2014Q3

REPORT INFORMATION
  Report Type: Report from Study
  Country: US (occurrence: US)
  Receive Date: 20130118
  Receipt Date: 20140717
  Transmission Date: 20150326
  Serious: Yes (Hospitalization)
  Sender: FDA-Public Use
  Company Number: US-JNJFOC-20130105433

PATIENT
  Age: 27 Year
  Sex: Female
  Weight: 90.9 kg

DRUGS (11)
  1. PALIPERIDONE [Concomitant]
     Active Substance: PALIPERIDONE
  2. ZOLPIDEM [Concomitant]
     Active Substance: ZOLPIDEM\ZOLPIDEM TARTRATE
  3. APAP [Suspect]
     Active Substance: ACETAMINOPHEN
     Indication: PRODUCT USED FOR UNKNOWN INDICATION
     Route: 048
     Dates: start: 20130105
  4. TACROLIMUS. [Concomitant]
     Active Substance: TACROLIMUS
  5. PREGABALIN. [Concomitant]
     Active Substance: PREGABALIN
  6. APAP/OXYCODONE [Concomitant]
     Active Substance: ACETAMINOPHEN\OXYCODONE HYDROCHLORIDE
  7. BUPROPION [Concomitant]
     Active Substance: BUPROPION
  8. APAP [Suspect]
     Active Substance: ACETAMINOPHEN
     Route: 048
  9. CLONAZEPAM. [Concomitant]
     Active Substance: CLONAZEPAM
  10. CYCLOBENZAPRINE [Concomitant]
     Active Substance: CYCLOBENZAPRINE
  11. FENTANYL. [Concomitant]
     Active Substance: FENTANYL

REACTIONS (2)
  - Intentional overdose [Recovered/Resolved]
  - Self injurious behaviour [Recovered/Resolved]

NARRATIVE: CASE EVENT DATE: 20130105
